FAERS Safety Report 4536972-4 (Version None)
Quarter: 2004Q4

REPORT INFORMATION
  Report Type: 
  Country: None (occurrence: None)
  Receive Date: 20041220
  Receipt Date: 20041210
  Transmission Date: 20050328
  Serious: Yes (Life-Threatening, Hospitalization)
  Sender: FDA-Public Use
  Company Number: F01200403898

PATIENT
  Age: 53 Year
  Sex: Male

DRUGS (5)
  1. (OXALIPLATIN) - SOLUTION - 254 MG [Suspect]
     Indication: COLORECTAL CANCER METASTATIC
     Dosage: 254 MG Q3W, INTRAVENOUS NOS
     Route: 042
  2. CAPECITABINE - TABLET 2000 MG [Suspect]
     Dosage: 2000 MG TWICE DAILY FOR 2 WEEKS, ORAL
     Route: 048
  3. BEVACIZUMAB OR PLACEBO - SOLUTION - 1 UNIT [Suspect]
     Dosage: 1 UNIT Q3W, INTRAVENOUS NOS
     Route: 042
  4. BENDROFLUAZIDE [Concomitant]
  5. RAMIPRIL [Concomitant]

REACTIONS (4)
  - ABDOMINAL PAIN LOWER [None]
  - GROIN PAIN [None]
  - INTESTINAL PERFORATION [None]
  - PAIN IN EXTREMITY [None]
